FAERS Safety Report 5971451-9 (Version None)
Quarter: 2008Q4

REPORT INFORMATION
  Report Type: 
  Country: None (occurrence: None)
  Receive Date: 20081201
  Receipt Date: 20081118
  Transmission Date: 20090506
  Serious: Yes (Hospitalization)
  Sender: FDA-Public Use
  Company Number: US-JNJFOC-20081002104

PATIENT
  Sex: Male
  Weight: 92.99 kg

DRUGS (11)
  1. REMICADE [Suspect]
     Route: 042
  2. REMICADE [Suspect]
     Indication: RHEUMATOID ARTHRITIS
     Route: 042
  3. PLAQUENIL [Suspect]
     Indication: DRUG USE FOR UNKNOWN INDICATION
  4. ASPIRIN [Concomitant]
  5. DILANTIN [Concomitant]
  6. ARICEPT [Concomitant]
  7. ZOCOR [Concomitant]
  8. FISH OIL [Concomitant]
  9. PREDNISONE TAB [Concomitant]
  10. MULTIPLE VITAMIN [Concomitant]
     Route: 048
  11. PLAVIX [Concomitant]

REACTIONS (2)
  - ARTHROPOD BITE [None]
  - DRUG TOXICITY [None]
